FAERS Safety Report 23768020 (Version 2)
Quarter: 2025Q4

REPORT INFORMATION
  Report Type: Spontaneous
  Country: CN (occurrence: CN)
  Receive Date: 20240422
  Receipt Date: 20251216
  Transmission Date: 20260117
  Serious: Yes (Other)
  Sender: ACCORD
  Company Number: CN-Accord-419755

PATIENT
  Age: 52 Year
  Sex: Male

DRUGS (8)
  1. OXALIPLATIN [Suspect]
     Active Substance: OXALIPLATIN
     Indication: HER2 positive gastric cancer
     Dosage: EIGHT CYCLES
     Dates: start: 201909, end: 202004
  2. GIMERACIL\OTERACIL\TEGAFUR [Suspect]
     Active Substance: GIMERACIL\OTERACIL POTASSIUM\TEGAFUR
     Indication: HER2 positive gastric cancer
     Dosage: EIGHT CYCLES
     Dates: start: 201909, end: 202004
  3. OXALIPLATIN [Suspect]
     Active Substance: OXALIPLATIN
     Indication: Adenocarcinoma gastric stage III
     Dosage: EIGHT CYCLES
     Dates: start: 201909, end: 202004
  4. GIMERACIL\OTERACIL\TEGAFUR [Suspect]
     Active Substance: GIMERACIL\OTERACIL POTASSIUM\TEGAFUR
     Indication: Adenocarcinoma gastric stage III
     Dosage: EIGHT CYCLES
     Dates: start: 201909, end: 202004
  5. OXALIPLATIN [Suspect]
     Active Substance: OXALIPLATIN
     Indication: Adenocarcinoma gastric
     Dosage: EIGHT CYCLES
     Dates: start: 201909, end: 202004
  6. GIMERACIL\OTERACIL\TEGAFUR [Suspect]
     Active Substance: GIMERACIL\OTERACIL POTASSIUM\TEGAFUR
     Indication: Adenocarcinoma gastric
     Dosage: EIGHT CYCLES
     Dates: start: 201909, end: 202004
  7. GIMERACIL\OTERACIL\TEGAFUR [Suspect]
     Active Substance: GIMERACIL\OTERACIL POTASSIUM\TEGAFUR
     Indication: Metastases to lymph nodes
     Dosage: EIGHT CYCLES
     Dates: start: 201909, end: 202004
  8. OXALIPLATIN [Suspect]
     Active Substance: OXALIPLATIN
     Indication: Metastases to lymph nodes
     Dosage: EIGHT CYCLES
     Dates: start: 201909, end: 202004

REACTIONS (3)
  - Nausea [Unknown]
  - Neurotoxicity [Unknown]
  - Neutrophil count abnormal [Unknown]
